FAERS Safety Report 8485374-7 (Version None)
Quarter: 2012Q3

REPORT INFORMATION
  Report Type: 
  Country: None (occurrence: None)
  Receive Date: 20120703
  Receipt Date: 20120627
  Transmission Date: 20120928
  Serious: Yes (Hospitalization)
  Sender: FDA-Public Use
  Company Number: FR-FRI-1000036781

PATIENT
  Age: 73 Year
  Sex: Male

DRUGS (9)
  1. RAMIPRIL [Concomitant]
     Route: 048
  2. CARBIMAZOLE [Concomitant]
  3. FLECAINIDE ACETATE [Suspect]
     Dosage: 100 MG
     Route: 048
     Dates: start: 20120507, end: 20120510
  4. ATORVASTATIN [Concomitant]
  5. HUMALOG [Concomitant]
  6. NEBIVOLOL [Suspect]
     Indication: HYPERTENSION
     Dosage: 5 MG
     Route: 048
  7. NOVORAPID [Concomitant]
  8. STABLON [Concomitant]
  9. FLUINDIONE [Concomitant]

REACTIONS (3)
  - SINUS BRADYCARDIA [None]
  - DRUG INTERACTION [None]
  - FALL [None]
